FAERS Safety Report 8223828-9 (Version None)
Quarter: 2012Q1

REPORT INFORMATION
  Report Type: 
  Country: None (occurrence: None)
  Receive Date: 20120316
  Receipt Date: 20120302
  Transmission Date: 20120608
  Serious: Yes (Other)
  Sender: FDA-Public Use
  Company Number: ACO_29656_2012

PATIENT
  Age: 55 Year
  Sex: Female

DRUGS (7)
  1. BACLOFEN [Concomitant]
  2. URIVESC (TROSPIUM CHLORIDE) [Concomitant]
  3. EMSELEX /01760401/ (DARIFENACIN) [Concomitant]
  4. COPAXONE [Concomitant]
  5. MICTONORM (PROPIVERINE HYDROCHLORIDE) [Concomitant]
  6. FAMPYRA (DALFAMPRIDINE) TABLET, 10MG [Suspect]
     Indication: GAIT SPASTIC
     Dosage: 10 MG, BID, ORAL
     Route: 048
     Dates: start: 20111104
  7. FLUOXETINE HCL [Concomitant]

REACTIONS (1)
  - SKIN DISCOLOURATION [None]
